FAERS Safety Report 5053931-6 (Version None)
Quarter: 2006Q3

REPORT INFORMATION
  Report Type: 
  Country: None (occurrence: None)
  Receive Date: 20060718
  Receipt Date: 20050916
  Transmission Date: 20061208
  Serious: Yes (Other)
  Sender: FDA-Public Use
  Company Number: US-MERCK-0509USA02379

PATIENT
  Age: 0 Day

DRUGS (2)
  1. SINGULAIR [Suspect]
     Indication: DERMATITIS ALLERGIC
     Dates: start: 20050916
  2. ZYRTEC [Concomitant]

REACTIONS (1)
  - BRADYCARDIA FOETAL [None]
